FAERS Safety Report 9693809 (Version 2)
Quarter: 2014Q2

REPORT INFORMATION
  Report Type: Spontaneous
  Country: AU (occurrence: AU)
  Receive Date: 20131118
  Receipt Date: 20140603
  Transmission Date: 20141212
  Serious: Yes (Other)
  Sender: FDA-Public Use
  Company Number: AU-ABBVIE-13P-008-1157803-00

PATIENT
  Age: 33 Year
  Sex: Female

DRUGS (1)
  1. EPILIM [Suspect]
     Indication: EPILEPSY
     Dosage: 1 GRAM DAILY

REACTIONS (3)
  - Convulsion [Recovered/Resolved]
  - Somnambulism [Recovered/Resolved]
  - Abnormal behaviour [Recovered/Resolved]
